FAERS Safety Report 14735947 (Version 2)
Quarter: 2018Q2

REPORT INFORMATION
  Report Type: Report from Study
  Country: US (occurrence: US)
  Receive Date: 20180409
  Receipt Date: 20180411
  Transmission Date: 20180711
  Serious: Yes (Other)
  Sender: FDA-Public Use
  Company Number: US-TEVA-2018-US-878179

PATIENT
  Age: 52 Year
  Sex: Female

DRUGS (2)
  1. COPAXONE [Suspect]
     Active Substance: GLATIRAMER ACETATE
     Indication: MULTIPLE SCLEROSIS
     Route: 058
     Dates: start: 20180321, end: 20180330
  2. COPAXONE [Suspect]
     Active Substance: GLATIRAMER ACETATE
     Route: 058
     Dates: start: 20110521, end: 20110805

REACTIONS (8)
  - Lip disorder [Unknown]
  - Anaphylactic shock [Unknown]
  - Rash [Unknown]
  - Swelling face [Unknown]
  - Hypotension [Unknown]
  - Syncope [Unknown]
  - Injection site urticaria [Unknown]
  - Dehydration [Unknown]

NARRATIVE: CASE EVENT DATE: 20180330
